FAERS Safety Report 4964991-2 (Version None)
Quarter: 2006Q1

REPORT INFORMATION
  Report Type: 
  Country: None (occurrence: None)
  Receive Date: 20060201
  Receipt Date: 20051005
  Transmission Date: 20060701
  Serious: No
  Sender: FDA-Public Use
  Company Number: FACT0500610

PATIENT
  Age: 38 Year
  Sex: Female
  Weight: 63.5 kg

DRUGS (4)
  1. FACTIVE [Suspect]
     Indication: RESPIRATORY TRACT INFECTION BACTERIAL
     Dosage: ORAL
     Route: 048
     Dates: start: 20051004, end: 20051004
  2. ADVAIR DISKUS 100/50 [Concomitant]
  3. ALBUTEROL [Concomitant]
  4. BECONASE (BECLOMETASONE DIPROPIONATE) [Concomitant]

REACTIONS (2)
  - ABDOMINAL DISTENSION [None]
  - PAIN [None]
